FAERS Safety Report 6520650-6 (Version None)
Quarter: 2009Q4

REPORT INFORMATION
  Report Type: 
  Country: None (occurrence: None)
  Receive Date: 20091229
  Receipt Date: 20091221
  Transmission Date: 20100525
  Serious: Yes (Hospitalization)
  Sender: FDA-Public Use
  Company Number: FR-TEVA-218600ISR

PATIENT
  Age: 60 Year
  Sex: Female

DRUGS (1)
  1. RISPERIDONE [Suspect]

REACTIONS (1)
  - PHOTOSENSITIVITY REACTION [None]
